FAERS Safety Report 6566041-3 (Version None)
Quarter: 2010Q1

REPORT INFORMATION
  Report Type: 
  Country: None (occurrence: None)
  Receive Date: 20100202
  Receipt Date: 20100118
  Transmission Date: 20100710
  Serious: No
  Sender: FDA-Public Use
  Company Number: SE-DENTSPLY-2010-0007-EUR

PATIENT
  Age: 17 Year
  Sex: Female

DRUGS (1)
  1. XYLOCAINE [Suspect]

REACTIONS (3)
  - HYPERAESTHESIA [None]
  - PAIN [None]
  - SENSORY DISTURBANCE [None]
